FAERS Safety Report 19945211 (Version 1)
Quarter: 2021Q4

REPORT INFORMATION
  Report Type: Spontaneous
  Country: US (occurrence: US)
  Receive Date: 20211012
  Receipt Date: 20211012
  Transmission Date: 20220303
  Serious: Yes (Hospitalization)
  Sender: FDA-Public Use
  Company Number: US-INCYTE CORPORATION-2021IN009126

PATIENT

DRUGS (1)
  1. JAKAFI [Suspect]
     Active Substance: RUXOLITINIB
     Indication: Polycythaemia
     Dosage: 20 MILLIGRAM, BID
     Route: 048
     Dates: start: 20210213

REACTIONS (2)
  - Asthenia [Recovering/Resolving]
  - Memory impairment [Recovering/Resolving]

NARRATIVE: CASE EVENT DATE: 20210901
